FAERS Safety Report 8082116-4 (Version None)
Quarter: 2012Q1

REPORT INFORMATION
  Report Type: 
  Country: None (occurrence: None)
  Receive Date: 20120127
  Receipt Date: 20110210
  Transmission Date: 20120608
  Serious: No
  Sender: FDA-Public Use
  Company Number: US-ABBOTT-11P-163-0704123-00

PATIENT
  Age: 58 Year
  Sex: Female

DRUGS (5)
  1. MINOCYCLINE HCL [Concomitant]
     Indication: ARTHRITIS
  2. HUMIRA [Suspect]
     Indication: PSORIATIC ARTHROPATHY
     Dates: start: 20101226
  3. MINOCYCLINE HCL [Concomitant]
     Indication: COUGH
     Dosage: 1-2 TIMES PER DAY, FOR COUGH
  4. PREDNISONE TAB [Suspect]
     Indication: PRODUCT USED FOR UNKNOWN INDICATION
     Dosage: 40MG DAILY
     Dates: start: 20110201
  5. PREDNISONE TAB [Suspect]
     Dosage: 15MG DAILY
     Dates: start: 20110201

REACTIONS (2)
  - PAIN [None]
  - HEADACHE [None]
